FAERS Safety Report 12774999 (Version 1)
Quarter: 2016Q3

REPORT INFORMATION
  Report Type: Spontaneous
  Country: TR (occurrence: TR)
  Receive Date: 20160923
  Receipt Date: 20160923
  Transmission Date: 20161109
  Serious: Yes (Other)
  Sender: FDA-Public Use
  Company Number: TR-MYLANLABS-2016M1040506

PATIENT

DRUGS (1)
  1. CYANOCOBALAMIN. [Suspect]
     Active Substance: CYANOCOBALAMIN
     Indication: VITAMIN B12 DEFICIENCY
     Dosage: INITIAL DOSE NOT STATED; SECOND DOSE 1MG
     Route: 030

REACTIONS (2)
  - Angioedema [Recovering/Resolving]
  - Conjunctival hyperaemia [Recovering/Resolving]
